FAERS Safety Report 21259677 (Version 2)
Quarter: 2022Q4

REPORT INFORMATION
  Report Type: Spontaneous
  Country: US (occurrence: US)
  Receive Date: 20220826
  Receipt Date: 20221003
  Transmission Date: 20230112
  Serious: Yes (Other)
  Sender: FDA-Public Use
  Company Number: US-JNJFOC-20220836522

PATIENT
  Age: 70 Year
  Sex: Male

DRUGS (2)
  1. STELARA [Suspect]
     Active Substance: USTEKINUMAB
     Indication: Psoriatic arthropathy
     Dosage: 90.00 MG/ML
     Route: 058
  2. STELARA [Suspect]
     Active Substance: USTEKINUMAB
     Indication: Psoriasis

REACTIONS (6)
  - Psoriatic arthropathy [Not Recovered/Not Resolved]
  - Needle issue [Unknown]
  - Device issue [Unknown]
  - Product dose omission issue [Unknown]
  - Therapeutic response decreased [Unknown]
  - Needle issue [Unknown]

NARRATIVE: CASE EVENT DATE: 20220815
